FAERS Safety Report 6839648-3 (Version None)
Quarter: 2010Q3

REPORT INFORMATION
  Report Type: 
  Country: None (occurrence: None)
  Receive Date: 20100714
  Receipt Date: 20100618
  Transmission Date: 20110219
  Serious: No
  Sender: FDA-Public Use
  Company Number: US-BAYER-201026543NA

PATIENT
  Age: 66 Year
  Sex: Male
  Weight: 109 kg

DRUGS (1)
  1. MAGNEVIST [Suspect]
     Indication: NUCLEAR MAGNETIC RESONANCE IMAGING ABDOMINAL
     Dosage: PRESSURE INJECTION ?
     Dates: start: 20100618, end: 20100618

REACTIONS (3)
  - NAUSEA [None]
  - PRURITUS [None]
  - RETCHING [None]
